FAERS Safety Report 10018343 (Version 2)
Quarter: 2014Q1

REPORT INFORMATION
  Report Type: Spontaneous
  Country: US (occurrence: US)
  Receive Date: 20140318
  Receipt Date: 20140321
  Transmission Date: 20141002
  Serious: Yes (Other)
  Sender: FDA-Public Use
  Company Number: US-TEVA-469319USA

PATIENT
  Age: 41 Year
  Sex: Female

DRUGS (4)
  1. ACTIQ [Suspect]
     Indication: PRODUCT USED FOR UNKNOWN INDICATION
     Dosage: EVERY 3 - 4 HOURS
  2. FENTORA [Suspect]
     Indication: PRODUCT USED FOR UNKNOWN INDICATION
     Dosage: EVERY 3 TO 4 HOURS
  3. OXYCONTIN [Concomitant]
  4. OXYCODONE [Concomitant]

REACTIONS (9)
  - Adverse event [Unknown]
  - Endotracheal intubation [Unknown]
  - Road traffic accident [Unknown]
  - Intentional drug misuse [Unknown]
  - Anxiety [Unknown]
  - Upper limb fracture [Unknown]
  - Nausea [Unknown]
  - Nausea [Unknown]
  - Malaise [Unknown]
